FAERS Safety Report 13025524 (Version 1)
Quarter: 2016Q4

REPORT INFORMATION
  Report Type: Spontaneous
  Country: US (occurrence: US)
  Receive Date: 20161214
  Receipt Date: 20161214
  Transmission Date: 20170207
  Serious: Yes (Other)
  Sender: FDA-Public Use
  Company Number: US-SHIRE-US201619043

PATIENT
  Age: 59 Year
  Sex: Male

DRUGS (1)
  1. VPRIV [Suspect]
     Active Substance: VELAGLUCERASE ALFA
     Indication: GAUCHER^S DISEASE
     Dosage: 4400 IU, 1X/WEEK
     Route: 041
     Dates: start: 20160201

REACTIONS (2)
  - Inappropriate schedule of drug administration [Not Recovered/Not Resolved]
  - Pulmonary arterial hypertension [Unknown]

NARRATIVE: CASE EVENT DATE: 20160201
